FAERS Safety Report 6835332-0 (Version None)
Quarter: 2010Q3

REPORT INFORMATION
  Report Type: 
  Country: None (occurrence: None)
  Receive Date: 20100707
  Receipt Date: 20100624
  Transmission Date: 20110219
  Serious: Yes (Hospitalization, Other)
  Sender: FDA-Public Use
  Company Number: WAES 1006USA03726

PATIENT
  Age: 75 Year
  Sex: Female
  Weight: 76.6579 kg

DRUGS (2)
  1. CAP VORINOSTAT [Suspect]
     Dosage: 400MG/ DAILY /PO
     Route: 048
     Dates: start: 20100606
  2. VELCADE [Suspect]
     Dosage: 2.3 MG/ IV
     Dates: start: 20100608

REACTIONS (8)
  - ARRHYTHMIA [None]
  - ELECTROCARDIOGRAM QT PROLONGED [None]
  - FALL [None]
  - FATIGUE [None]
  - FEMUR FRACTURE [None]
  - MYOCARDIAL ISCHAEMIA [None]
  - NAUSEA [None]
  - VOMITING [None]
